FAERS Safety Report 4732173-5 (Version None)
Quarter: 2005Q3

REPORT INFORMATION
  Report Type: 
  Country: None (occurrence: None)
  Receive Date: 20050802
  Receipt Date: 20050729
  Transmission Date: 20060218
  Serious: Yes (Disabling, Other)
  Sender: FDA-Public Use
  Company Number: GB-MERCK-0508GBR00001

PATIENT
  Age: 78 Year
  Sex: Female
  Weight: 60 kg

DRUGS (6)
  1. SINGULAIR [Suspect]
     Indication: WHEEZING
     Route: 048
     Dates: start: 20050706, end: 20050711
  2. ATORVASTATIN CALCIUM [Concomitant]
     Route: 065
     Dates: start: 20050601
  3. TACROLIMUS [Concomitant]
     Route: 065
     Dates: start: 20041022
  4. ALBUTEROL [Concomitant]
     Route: 055
     Dates: start: 20050706
  5. BETAMETHASONE VALERATE [Concomitant]
     Route: 065
     Dates: start: 20050706
  6. MINERAL OIL [Concomitant]
     Route: 065
     Dates: start: 20030925

REACTIONS (1)
  - VISUAL DISTURBANCE [None]
